FAERS Safety Report 4494958-2 (Version None)
Quarter: 2004Q4

REPORT INFORMATION
  Report Type: 
  Country: None (occurrence: None)
  Receive Date: 20041105
  Receipt Date: 20041105
  Transmission Date: 20050328
  Serious: Yes (Hospitalization)
  Sender: FDA-Public Use
  Company Number: None

PATIENT
  Age: 60 Year
  Sex: Female

DRUGS (1)
  1. GEODON [Suspect]
     Dosage: 40MG    BID    ORAL
     Route: 048
     Dates: start: 20040614, end: 20040624

REACTIONS (1)
  - HYPOTENSION [None]
